FAERS Safety Report 17174590 (Version 1)
Quarter: 2019Q4

REPORT INFORMATION
  Report Type: Spontaneous
  Country: JP (occurrence: JP)
  Receive Date: 20191219
  Receipt Date: 20191219
  Transmission Date: 20200122
  Serious: Yes (Other)
  Sender: FDA-Public Use
  Company Number: JP-PFIZER INC-2019533689

PATIENT
  Age: 49 Year
  Sex: Male

DRUGS (2)
  1. INFLIXIMAB PFIZER [Suspect]
     Active Substance: INFLIXIMAB
     Indication: FISTULA
  2. INFLIXIMAB PFIZER [Suspect]
     Active Substance: INFLIXIMAB
     Indication: CROHN^S DISEASE
     Dosage: UNK

REACTIONS (1)
  - Neuropathy peripheral [Unknown]
